FAERS Safety Report 8160661-0 (Version None)
Quarter: 2012Q1

REPORT INFORMATION
  Report Type: 
  Country: None (occurrence: None)
  Receive Date: 20120223
  Receipt Date: 20120215
  Transmission Date: 20120608
  Serious: Yes (Other)
  Sender: FDA-Public Use
  Company Number: US-ASTRAZENECA-2012SE10473

PATIENT
  Age: 79 Year
  Sex: Female

DRUGS (2)
  1. CRESTOR [Suspect]
     Route: 048
  2. ARIMIDEX [Suspect]
     Route: 048

REACTIONS (5)
  - MEMORY IMPAIRMENT [None]
  - NEOPLASM MALIGNANT [None]
  - SPEECH DISORDER [None]
  - TOOTH DISORDER [None]
  - HEARING IMPAIRED [None]
